FAERS Safety Report 12182626 (Version 2)
Quarter: 2016Q2

REPORT INFORMATION
  Report Type: Report from Study
  Country: US (occurrence: US)
  Receive Date: 20160316
  Receipt Date: 20160407
  Transmission Date: 20160815
  Serious: Yes (Other)
  Sender: FDA-Public Use
  Company Number: US-GILEAD-2016-0203099

PATIENT
  Age: 41 Year
  Sex: Female

DRUGS (36)
  1. SILDENAFIL. [Concomitant]
     Active Substance: SILDENAFIL
  2. AMLODIPINE [Concomitant]
     Active Substance: AMLODIPINE BESYLATE
  3. AMLODIPINE [Concomitant]
     Active Substance: AMLODIPINE BESYLATE
  4. IPRATROPIUM [Concomitant]
     Active Substance: IPRATROPIUM
  5. LYRICA [Concomitant]
     Active Substance: PREGABALIN
  6. FOLIC ACID. [Concomitant]
     Active Substance: FOLIC ACID
  7. ACETAMINOPHEN\HYDROCODONE BITARTRATE [Concomitant]
     Active Substance: ACETAMINOPHEN\HYDROCODONE BITARTRATE
  8. ADEMPAS [Concomitant]
     Active Substance: RIOCIGUAT
  9. FLUTICASONE [Concomitant]
     Active Substance: FLUTICASONE\FLUTICASONE PROPIONATE
  10. LEFLUNOMIDE. [Concomitant]
     Active Substance: LEFLUNOMIDE
  11. PREDNISONE. [Concomitant]
     Active Substance: PREDNISONE
  12. METHOTREXATE [Concomitant]
     Active Substance: METHOTREXATE
  13. FUROSEMIDE. [Concomitant]
     Active Substance: FUROSEMIDE
  14. FUROSEMIDE. [Concomitant]
     Active Substance: FUROSEMIDE
  15. PLAQUENIL                          /00072602/ [Concomitant]
     Active Substance: HYDROXYCHLOROQUINE DIPHOSPHATE
  16. FAMOTIDINE. [Concomitant]
     Active Substance: FAMOTIDINE
  17. FOSAMAX [Concomitant]
     Active Substance: ALENDRONATE SODIUM
  18. HYDROCORT                          /00028602/ [Concomitant]
  19. XARELTO [Concomitant]
     Active Substance: RIVAROXABAN
  20. MICRO K [Concomitant]
  21. AMBRISENTAN [Suspect]
     Active Substance: AMBRISENTAN
     Indication: PULMONARY HYPERTENSION
     Dosage: 10 MG, QD
     Route: 065
     Dates: start: 20160106
  22. FLUTICASONE [Concomitant]
     Active Substance: FLUTICASONE\FLUTICASONE PROPIONATE
  23. CELLCEPT [Concomitant]
     Active Substance: MYCOPHENOLATE MOFETIL\MYCOPHENOLATE MOFETIL HYDROCHLORIDE
  24. ADEMPAS [Concomitant]
     Active Substance: RIOCIGUAT
  25. IPRATROPIUM [Concomitant]
     Active Substance: IPRATROPIUM
  26. ALENDRONATE [Concomitant]
     Active Substance: ALENDRONATE SODIUM
  27. OYSCO 500+D [Concomitant]
  28. FOSAMAX [Concomitant]
     Active Substance: ALENDRONATE SODIUM
  29. HYDROCHLOROTH [Concomitant]
     Active Substance: HYDROCHLOROTHIAZIDE
  30. METOPROLOL. [Concomitant]
     Active Substance: METOPROLOL
  31. MYCOPHENOLATE [Concomitant]
     Active Substance: MYCOPHENOLIC ACID
  32. FAMOTIDINE. [Concomitant]
     Active Substance: FAMOTIDINE
  33. LEFLUNOMIDE. [Concomitant]
     Active Substance: LEFLUNOMIDE
  34. LYRICA [Concomitant]
     Active Substance: PREGABALIN
  35. PREDNISONE. [Concomitant]
     Active Substance: PREDNISONE
  36. XARELTO [Concomitant]
     Active Substance: RIVAROXABAN

REACTIONS (4)
  - Drug dose omission [Unknown]
  - Nasal congestion [Not Recovered/Not Resolved]
  - Syncope [Not Recovered/Not Resolved]
  - Dizziness [Not Recovered/Not Resolved]

NARRATIVE: CASE EVENT DATE: 201602
